FAERS Safety Report 5896509-4 (Version None)
Quarter: 2008Q3

REPORT INFORMATION
  Report Type: 
  Country: None (occurrence: None)
  Receive Date: 20080924
  Receipt Date: 20070808
  Transmission Date: 20090109
  Serious: Yes (Other)
  Sender: FDA-Public Use
  Company Number: US-BAYER-200712044BWH

PATIENT
  Age: 56 Year
  Sex: Female
  Weight: 102 kg

DRUGS (4)
  1. AVELOX [Suspect]
     Indication: SINUSITIS
     Route: 048
  2. ADVAIR DISKUS 100/50 [Concomitant]
  3. FLONASE [Concomitant]
  4. ALBUTEROL [Concomitant]

REACTIONS (3)
  - ANGIOEDEMA [None]
  - DYSMORPHISM [None]
  - SWELLING [None]
